FAERS Safety Report 8517152-4 (Version None)
Quarter: 2012Q3

REPORT INFORMATION
  Report Type: 
  Country: None (occurrence: None)
  Receive Date: 20120718
  Receipt Date: 20120712
  Transmission Date: 20120928
  Serious: Yes (Other)
  Sender: FDA-Public Use
  Company Number: DE-B.I. PHARMACEUTICALS,INC./RIDGEFIELD-2012-DE-01625DE

PATIENT
  Age: 54 Year
  Sex: Female
  Weight: 100 kg

DRUGS (2)
  1. FISH OIL CAPSULES [Concomitant]
  2. MICARDIS [Suspect]
     Indication: HYPERTENSION
     Dates: start: 20090801

REACTIONS (10)
  - DIZZINESS [None]
  - HYPERHIDROSIS [None]
  - MYALGIA [None]
  - BLOOD URIC ACID INCREASED [None]
  - ARTHRALGIA [None]
  - RHEUMATOID FACTOR INCREASED [None]
  - ANGINA UNSTABLE [None]
  - PRURITUS [None]
  - TENDON PAIN [None]
  - GASTROINTESTINAL HAEMORRHAGE [None]
